FAERS Safety Report 8654358 (Version 3)
Quarter: 2012Q4

REPORT INFORMATION
  Report Type: Report from Study
  Country: CA (occurrence: CA)
  Receive Date: 20120709
  Receipt Date: 20121023
  Transmission Date: 20130627
  Serious: Yes (Death, Hospitalization, Other)
  Sender: FDA-Public Use
  Company Number: CA-ABBOTT-12P-028-0951821-00

PATIENT
  Sex: Male
  Weight: 95.34 kg

DRUGS (5)
  1. LUPRON DEPOT 30 MG [Suspect]
     Indication: PROSTATE CANCER
     Route: 030
     Dates: start: 2006
  2. ALLOPURINOL [Concomitant]
     Indication: PRODUCT USED FOR UNKNOWN INDICATION
  3. AMLODIPINE [Concomitant]
     Indication: PRODUCT USED FOR UNKNOWN INDICATION
  4. HYDROMORPHONE [Concomitant]
     Indication: PRODUCT USED FOR UNKNOWN INDICATION
  5. NITROGLYCERIN [Concomitant]
     Indication: PRODUCT USED FOR UNKNOWN INDICATION

REACTIONS (10)
  - Prostate cancer metastatic [Fatal]
  - Lung neoplasm malignant [Fatal]
  - Surgery [Fatal]
  - Squamous cell carcinoma [Unknown]
  - Femur fracture [Unknown]
  - Delirium [Unknown]
  - Lung cancer metastatic [Unknown]
  - Renal impairment [Unknown]
  - Chronic obstructive pulmonary disease [Unknown]
  - Myocardial infarction [Unknown]
